FAERS Safety Report 23661692 (Version 9)
Quarter: 2024Q2

REPORT INFORMATION
  Report Type: Spontaneous
  Country: CA (occurrence: CA)
  Receive Date: 20240322
  Receipt Date: 20240618
  Transmission Date: 20240715
  Serious: Yes (Hospitalization, Other)
  Sender: FDA-Public Use
  Company Number: CA-CELLTRION INC.-2024CA006998

PATIENT

DRUGS (22)
  1. INFLECTRA [Suspect]
     Active Substance: INFLIXIMAB-DYYB
     Indication: Rheumatoid arthritis
     Dosage: 5 MG/KG, 0, 2, 6 WEEKS THEN EVERY 8 WEEKS
     Route: 042
     Dates: start: 20210318, end: 20210621
  2. INFLECTRA [Suspect]
     Active Substance: INFLIXIMAB-DYYB
     Indication: Ankylosing spondylitis
     Dosage: 500 MG, EVERY 6 WEEKS
     Route: 042
     Dates: start: 20210730, end: 20211202
  3. INFLECTRA [Suspect]
     Active Substance: INFLIXIMAB-DYYB
     Dosage: 500 MG, EVERY 4 WEEKS
     Route: 042
     Dates: start: 20220202, end: 20240215
  4. INFLECTRA [Suspect]
     Active Substance: INFLIXIMAB-DYYB
     Dosage: 500 MG, EVERY 4 WEEKS
     Route: 042
     Dates: start: 20240215
  5. INFLECTRA [Suspect]
     Active Substance: INFLIXIMAB-DYYB
     Dosage: UNK
     Route: 042
     Dates: start: 20240410
  6. INFLECTRA [Suspect]
     Active Substance: INFLIXIMAB-DYYB
     Dosage: 500 MG, EVERY 4 WEEKS
     Route: 042
     Dates: start: 20240429
  7. INFLECTRA [Suspect]
     Active Substance: INFLIXIMAB-DYYB
     Dosage: 400 MG,  W0, 2, 6 WEEKS THEN EVERY 4 WEEKS, REINDUCTION
     Route: 042
     Dates: start: 20240429
  8. BISOPROLOL [Concomitant]
     Active Substance: BISOPROLOL\BISOPROLOL FUMARATE
     Dosage: 5 MG, FREQUENCY UNKNOWN
  9. CELECOXIB [Concomitant]
     Active Substance: CELECOXIB
     Dosage: 40 MG, 1X/DAY
     Route: 065
  10. CELEXA [Concomitant]
     Active Substance: CITALOPRAM HYDROBROMIDE
     Dosage: 40 MG, 1X/DAY
     Route: 065
  11. CODEINE [Concomitant]
     Active Substance: CODEINE
     Dosage: 30 MG, ALTERNATE DAY [EVERY 2 DAY]
     Route: 065
  12. PERINDOPRIL ERBUMINE [Concomitant]
     Active Substance: PERINDOPRIL ERBUMINE
     Dosage: 4 MG, 1X/DAY
     Route: 065
  13. DOXAZOSIN [Concomitant]
     Active Substance: DOXAZOSIN MESYLATE
     Dosage: 1 MG, 1X/DAY
     Route: 065
  14. ERELZI [Concomitant]
     Active Substance: ETANERCEPT-SZZS
     Dosage: 1 DF,UNKNOWN
     Route: 065
  15. NORVASC [Concomitant]
     Active Substance: AMLODIPINE BESYLATE
     Dosage: 10 MG, 1X/DAY
  16. PANTOPRAZOLE SODIUM [Concomitant]
     Active Substance: PANTOPRAZOLE SODIUM
     Dosage: 40 MG, 1X/DAY
     Route: 065
  17. POTASSIUM [Concomitant]
     Active Substance: POTASSIUM
     Dosage: 1 DF, 2 TABS
     Route: 048
  18. PREDNISONE [Concomitant]
     Active Substance: PREDNISONE
     Dosage: 1 DROP, TO LEFT EYE FREQUENCY UNKNOWN
     Route: 047
  19. PERINDOPRIL [Concomitant]
     Active Substance: PERINDOPRIL
     Dosage: UNK
  20. SODIUM CHLORIDE [Concomitant]
     Active Substance: SODIUM CHLORIDE
     Dosage: 1 G, FREQUENCY UNKNOWN
     Route: 048
  21. CHOLECALCIFEROL [Concomitant]
     Active Substance: CHOLECALCIFEROL
     Dosage: 5000 MG, FREQUENCY UNKNOWN
     Route: 048
  22. VITAMIN B12 [Concomitant]
     Active Substance: CYANOCOBALAMIN
     Dosage: 1000 MG, FREQUENCY UNKNOWN
     Route: 048

REACTIONS (4)
  - Acute kidney injury [Unknown]
  - Malaise [Unknown]
  - Cystitis [Recovered/Resolved]
  - Malaise [Unknown]

NARRATIVE: CASE EVENT DATE: 20240101
